FAERS Safety Report 8336402 (Version 2)
Quarter: 2012Q4

REPORT INFORMATION
  Report Type: Report from Study
  Country: DE (occurrence: DE)
  Receive Date: 20120113
  Receipt Date: 20120925
  Transmission Date: 20130627
  Serious: Yes (Death, Hospitalization)
  Sender: FDA-Public Use
  Company Number: DE-ROCHE-1029234

PATIENT
  Age: 77 Year
  Sex: Male
  Weight: 78 kg

DRUGS (19)
  1. AVASTIN [Suspect]
     Indication: NON-SMALL CELL LUNG CANCER
     Route: 042
     Dates: start: 20111209
  2. PEMETREXED DISODIUM [Suspect]
     Indication: NON-SMALL CELL LUNG CANCER
     Route: 042
     Dates: start: 20111209
  3. CARBOPLATIN [Suspect]
     Indication: NON-SMALL CELL LUNG CANCER
     Dosage: AUC 5
     Route: 042
     Dates: start: 20111209
  4. MICARDIS [Concomitant]
     Route: 065
     Dates: start: 2009
  5. AMLODIPIN [Concomitant]
     Route: 065
     Dates: start: 2009
  6. HCTZ [Concomitant]
     Route: 065
  7. ALLOPURINOL [Concomitant]
  8. OMEPRAZOLE [Concomitant]
  9. THEOPHYLLIN [Concomitant]
  10. TOREM [Concomitant]
  11. BISOPROLOL [Concomitant]
  12. MOXONIDIN [Concomitant]
  13. EUTHYROX [Concomitant]
  14. SPIRIVA [Concomitant]
     Route: 065
     Dates: start: 2005
  15. ATMADISC [Concomitant]
     Dosage: 50/500
     Route: 065
  16. SALBUTAMOL [Concomitant]
     Route: 065
     Dates: start: 2005
  17. NOVALGIN [Concomitant]
  18. SIMVASTIN [Concomitant]
  19. CLEXANE [Concomitant]

REACTIONS (1)
  - Respiratory failure [Fatal]
